FAERS Safety Report 16465041 (Version 7)
Quarter: 2022Q4

REPORT INFORMATION
  Report Type: Report from Study
  Country: US (occurrence: US)
  Receive Date: 20190621
  Receipt Date: 20221115
  Transmission Date: 20230113
  Serious: Yes (Hospitalization, Other)
  Sender: FDA-Public Use
  Company Number: US-VIFOR (INTERNATIONAL) INC.-VIT-2019-06147

PATIENT
  Age: 72 Year
  Sex: Male

DRUGS (2)
  1. VELTASSA [Suspect]
     Active Substance: PATIROMER
     Indication: Hyperkalaemia
     Route: 048
     Dates: start: 20181128
  2. VELTASSA [Suspect]
     Active Substance: PATIROMER
     Dosage: FREQUENCY-TUESDAY, THURSDAY, SATURDAY AND SUNDAY
     Route: 048
     Dates: start: 20181218

REACTIONS (9)
  - Therapeutic response decreased [Unknown]
  - Product physical consistency issue [Unknown]
  - Off label use [Unknown]
  - Device related infection [Unknown]
  - Diverticulitis [Unknown]
  - Haematochezia [Unknown]
  - Full blood count abnormal [Unknown]
  - Blood potassium increased [Unknown]
  - Nasopharyngitis [Unknown]

NARRATIVE: CASE EVENT DATE: 20181218
